FAERS Safety Report 5471572-3 (Version None)
Quarter: 2007Q3

REPORT INFORMATION
  Report Type: 
  Country: None (occurrence: None)
  Receive Date: 20070928
  Receipt Date: 20070119
  Transmission Date: 20080115
  Serious: No
  Sender: FDA-Public Use
  Company Number: US-BRISTOL-MYERS SQUIBB COMPANY-13648738

PATIENT
  Age: 52 Year
  Sex: Female
  Weight: 134 kg

DRUGS (2)
  1. DEFINITY [Suspect]
     Dosage: DEFINITY 1.5CC DILUTED WITH 8.5CC BACTERIOSTATIC NORMAL SALINE.
  2. HEPARIN [Concomitant]
     Route: 042

REACTIONS (1)
  - PRURITUS [None]
